FAERS Safety Report 8214933-1 (Version None)
Quarter: 2012Q1

REPORT INFORMATION
  Report Type: 
  Country: None (occurrence: None)
  Receive Date: 20120316
  Receipt Date: 20120313
  Transmission Date: 20120608
  Serious: No
  Sender: FDA-Public Use
  Company Number: US-PFIZER INC-2012066933

PATIENT
  Sex: Female
  Weight: 70.295 kg

DRUGS (4)
  1. XANAX XR [Suspect]
     Indication: ANXIETY
     Dosage: 2 MG, DAILY
     Route: 048
     Dates: start: 20040101
  2. XANAX XR [Suspect]
     Indication: PANIC DISORDER
     Dosage: 1.5 MG, DAILY
     Route: 048
     Dates: start: 20111201
  3. ZETIA [Suspect]
     Indication: BLOOD CHOLESTEROL INCREASED
     Dosage: 10 MG, DAILY
  4. XANAX XR [Suspect]
     Indication: GENERALISED ANXIETY DISORDER
     Dosage: 1 MG, DAILY
     Route: 048

REACTIONS (1)
  - BLOOD CHOLESTEROL INCREASED [None]
